FAERS Safety Report 4379417-X (Version None)
Quarter: 2004Q2

REPORT INFORMATION
  Report Type: 
  Country: None (occurrence: None)
  Receive Date: 20040614
  Receipt Date: 20010809
  Transmission Date: 20050107
  Serious: Yes (Hospitalization)
  Sender: FDA-Public Use
  Company Number: EM2001-1008

PATIENT
  Age: 35 Year
  Sex: Male

DRUGS (4)
  1. PROLEUKIN [Suspect]
     Indication: HIV INFECTION
     Dosage: 7.5 MIU, BID, SUBCUTAN.
     Route: 058
     Dates: start: 20010716
  2. RITONAVIR (RITONAVIR) [Concomitant]
  3. SAQUINAVIR (SAQUINAVIR) [Concomitant]
  4. COMBIVIR [Concomitant]

REACTIONS (20)
  - ABDOMINAL DISTENSION [None]
  - BLOOD CULTURE POSITIVE [None]
  - BLOOD PRESSURE DECREASED [None]
  - CHILLS [None]
  - CONFUSIONAL STATE [None]
  - DIARRHOEA [None]
  - DYSKINESIA [None]
  - ESCHERICHIA INFECTION [None]
  - FLATULENCE [None]
  - FOOD POISONING [None]
  - HEART RATE INCREASED [None]
  - INJECTION SITE ERYTHEMA [None]
  - LOSS OF CONSCIOUSNESS [None]
  - MENINGITIS [None]
  - METABOLIC DISORDER [None]
  - MUSCLE SPASMS [None]
  - RESTLESSNESS [None]
  - RHABDOMYOLYSIS [None]
  - SEPSIS [None]
  - SEPTIC SHOCK [None]
